FAERS Safety Report 23287883 (Version 1)
Quarter: 2023Q4

REPORT INFORMATION
  Report Type: Spontaneous
  Country: IN (occurrence: IN)
  Receive Date: 20231212
  Receipt Date: 20231212
  Transmission Date: 20240110
  Serious: Yes (Other)
  Sender: FDA-Public Use
  Company Number: IN-AMNEAL PHARMACEUTICALS-2023-AMRX-04280

PATIENT
  Age: 42 Year
  Sex: Female

DRUGS (13)
  1. DEXAMETHASONE SODIUM PHOSPHATE [Suspect]
     Active Substance: DEXAMETHASONE PHOSPHATE\DEXAMETHASONE SODIUM PHOSPHATE
     Indication: COVID-19
     Dosage: 6 MILLIGRAM, QD FOR 7 DAYS
     Route: 048
  2. BUDESONIDE\FORMOTEROL FUMARATE [Suspect]
     Active Substance: BUDESONIDE\FORMOTEROL FUMARATE
     Indication: COVID-19
     Dosage: (6 MCG) AND 9200MCG) TWICE DAILY, WHICH WAS CONTINUED EVEN AFTER DISCHARGE
  3. CEFOPERAZONE SODIUM\SULBACTAM [Concomitant]
     Active Substance: CEFOPERAZONE SODIUM\SULBACTAM
     Indication: COVID-19
     Dosage: 1000 MG + 1000 MG FOR 4 DAYS
     Route: 042
  4. HEPARIN [Concomitant]
     Active Substance: HEPARIN SODIUM
     Indication: COVID-19
     Dosage: 5000 UNITS EVERY 8 H FOR 3 DAYS
     Route: 058
  5. REMDESIVIR [Concomitant]
     Active Substance: REMDESIVIR
     Indication: COVID-19
     Dosage: 200 MG LOADING DOSE, THEN 100 MG A DAY FOR 4 DAYS
     Route: 042
  6. AZITHROMYCIN [Concomitant]
     Active Substance: AZITHROMYCIN
     Indication: COVID-19
     Dosage: 500 MG FOR 7 DAYS
     Route: 048
  7. DOXYCYCLINE [Concomitant]
     Active Substance: DOXYCYCLINE
     Indication: COVID-19
     Dosage: 100 MG TWICE DAILY FOR 7 DAYS
     Route: 048
  8. LEVOCETIRIZINE;MONTELUKAST [Concomitant]
     Indication: COVID-19
     Dosage: (10 MG) AND (5 MG) FOR 7 DAYS
     Route: 048
  9. VITAMIN C [Concomitant]
     Active Substance: ASCORBIC ACID
     Indication: COVID-19
     Dosage: 1 G FOR 7 DAYS
     Route: 048
  10. PANTOPRAZOLE [Concomitant]
     Active Substance: PANTOPRAZOLE
     Indication: COVID-19
     Dosage: 40 MG ONCE DAILY FOR 7 DAYS
     Route: 048
  11. IVERMECTIN [Concomitant]
     Active Substance: IVERMECTIN
     Indication: COVID-19
     Dosage: 12 MG ONCE DAILY FOR 7 DAYS
     Route: 048
  12. OXYGEN [Concomitant]
     Active Substance: OXYGEN
     Indication: COVID-19
     Dosage: 2 LITRES/MINUTE FOR 7 DAYS
  13. ALBUTEROL [Concomitant]
     Active Substance: ALBUTEROL
     Indication: COVID-19
     Dosage: UNK, 4X/DAY

REACTIONS (1)
  - Central serous chorioretinopathy [Recovering/Resolving]
